FAERS Safety Report 9380295 (Version 1)
Quarter: 2013Q3

REPORT INFORMATION
  Report Type: Report from Study
  Country: US (occurrence: US)
  Receive Date: 20130702
  Receipt Date: 20130702
  Transmission Date: 20140515
  Serious: Yes (Other)
  Sender: FDA-Public Use
  Company Number: US-BAYER-2013-078521

PATIENT
  Age: 50 Year
  Sex: Female

DRUGS (4)
  1. BETASERON [Suspect]
     Indication: RELAPSING-REMITTING MULTIPLE SCLEROSIS
     Dosage: 2 MIU, UNK
     Route: 058
     Dates: start: 20130613, end: 20130613
  2. BETASERON [Suspect]
     Indication: RELAPSING-REMITTING MULTIPLE SCLEROSIS
     Dosage: 2 MIU, QOD
     Route: 058
     Dates: start: 20130619
  3. ALEVE CAPLET [Concomitant]
     Indication: PREMEDICATION
  4. IBUPROFEN [Concomitant]
     Indication: PREMEDICATION

REACTIONS (13)
  - Hot flush [Not Recovered/Not Resolved]
  - Flushing [Recovered/Resolved]
  - Flushing [Recovered/Resolved]
  - Erythema [Recovered/Resolved]
  - Asthenia [Recovered/Resolved]
  - Loss of consciousness [Recovered/Resolved]
  - Fatigue [Not Recovered/Not Resolved]
  - Somnolence [Not Recovered/Not Resolved]
  - Pain [Not Recovered/Not Resolved]
  - Headache [Not Recovered/Not Resolved]
  - Injection site erythema [Not Recovered/Not Resolved]
  - Sinusitis [Recovered/Resolved]
  - Pyrexia [Recovered/Resolved]
